FAERS Safety Report 4819723-5 (Version None)
Quarter: 2005Q4

REPORT INFORMATION
  Report Type: 
  Country: None (occurrence: None)
  Receive Date: 20051102
  Receipt Date: 20051021
  Transmission Date: 20060501
  Serious: Yes (Death)
  Sender: FDA-Public Use
  Company Number: MK200510-0212-1

PATIENT
  Age: 40 Year
  Sex: Female

DRUGS (1)
  1. HYDROCODONE/APAP TABLETS (STRENGTH UNKNOWN) [Suspect]
     Dates: end: 20040218

REACTIONS (1)
  - DRUG TOXICITY [None]
